FAERS Safety Report 9776256 (Version 1)
Quarter: 2013Q4

REPORT INFORMATION
  Report Type: Spontaneous
  Country: JP (occurrence: JP)
  Receive Date: 20131220
  Receipt Date: 20131220
  Transmission Date: 20140711
  Serious: Yes (Other)
  Sender: FDA-Public Use
  Company Number: JP-GE HEALTHCARE MEDICAL DIAGNOSTICS-OMPQ-PR-1312S-1448

PATIENT
  Age: 66 Year
  Sex: Female

DRUGS (3)
  1. OMNIPAQUE [Suspect]
     Indication: PRODUCT USED FOR UNKNOWN INDICATION
     Route: 050
     Dates: start: 20131105, end: 20131105
  2. OMNIPAQUE [Suspect]
     Indication: DIAGNOSTIC PROCEDURE
  3. ALEVIATIN [Suspect]
     Indication: CONVULSION PROPHYLAXIS
     Route: 050
     Dates: start: 20131106, end: 20131107

REACTIONS (2)
  - Drug eruption [Recovered/Resolved]
  - Erythema [Unknown]
